FAERS Safety Report 13916201 (Version 1)
Quarter: 2017Q3

REPORT INFORMATION
  Report Type: Not Available
  Country: ES (occurrence: ES)
  Receive Date: 20170829
  Receipt Date: 20170829
  Transmission Date: 20171127
  Serious: Yes (Hospitalization)
  Sender: FDA-Public Use
  Company Number: ES-IDTAUSTRALIA-2017-ES-000042

PATIENT
  Age: 61 Year
  Sex: 0

DRUGS (10)
  1. ZYLORIC [Concomitant]
     Active Substance: ALLOPURINOL
  2. LANTUS [Concomitant]
     Active Substance: INSULIN GLARGINE
  3. AMOXICILLIN/CLAVULANIC ACID [Concomitant]
     Active Substance: AMOXICILLIN\CLAVULANIC ACID
  4. RITUXIMAB. [Concomitant]
     Active Substance: RITUXIMAB
  5. OMEPRAZOLE. [Concomitant]
     Active Substance: OMEPRAZOLE
  6. NEORRECORMON [Concomitant]
  7. FLUCONAZOLE (NON-SPECIFIC) [Suspect]
     Active Substance: FLUCONAZOLE
     Dosage: 200MG/24 HOURS
     Dates: start: 201605
  8. IBRUTINIB [Suspect]
     Active Substance: IBRUTINIB
     Dosage: 420MG/24HRS
     Dates: start: 20160425
  9. NATECAL [Concomitant]
     Active Substance: CALCIUM CARBONATE\CHOLECALCIFEROL
  10. ACYCLOVIR. [Concomitant]
     Active Substance: ACYCLOVIR

REACTIONS (5)
  - Hypoxic-ischaemic encephalopathy [Unknown]
  - Acute pulmonary oedema [Unknown]
  - Respiratory failure [Unknown]
  - Cardiac failure [Unknown]
  - Drug interaction [Unknown]
